FAERS Safety Report 5819717-7 (Version None)
Quarter: 2008Q3

REPORT INFORMATION
  Report Type: 
  Country: None (occurrence: None)
  Receive Date: 20080717
  Receipt Date: 20080702
  Transmission Date: 20090109
  Serious: Yes (Death)
  Sender: FDA-Public Use
  Company Number: 1-15856212

PATIENT
  Age: 54 Year
  Sex: Female

DRUGS (5)
  1. FENTANYL [Suspect]
     Dosage: 25 MCG/HR EVERY 72 HRS, TRANSDERMAL
     Route: 062
     Dates: start: 20080115, end: 20080302
  2. OXYCONTIN [Suspect]
     Dates: end: 20080302
  3. CITALOPRAM HYDROBROMIDE [Suspect]
     Dates: end: 20080302
  4. ACETAMINOPHEN [Concomitant]
  5. OXYMORPHONE [Concomitant]

REACTIONS (5)
  - CHEST PAIN [None]
  - INCORRECT DOSE ADMINISTERED [None]
  - PNEUMONIA [None]
  - PULMONARY CONGESTION [None]
  - PULMONARY OEDEMA [None]
